FAERS Safety Report 21523601 (Version 1)
Quarter: 2022Q4

REPORT INFORMATION
  Report Type: Report from Study
  Country: GB (occurrence: GB)
  Receive Date: 20221029
  Receipt Date: 20221029
  Transmission Date: 20230112
  Serious: Yes (Congenital Anomaly, Other)
  Sender: FDA-Public Use
  Company Number: GB-GILEAD-2022-0601181

PATIENT
  Age: 6 Month
  Sex: Female

DRUGS (7)
  1. EMTRICITABINE\TENOFOVIR [Suspect]
     Active Substance: EMTRICITABINE\TENOFOVIR
     Indication: HIV infection
     Dosage: 1 DOSAGE FORMS DAILY; UNIT DOSE : 1 DOSAGE FORMS, FREQUENCY ; 1 , FREQUENCY TIME : 1 DAYS, THERAPY E
     Route: 064
     Dates: start: 20210719
  2. ATAZANAVIR [Suspect]
     Active Substance: ATAZANAVIR
     Indication: HIV infection
     Dosage: 300 MILLIGRAM DAILY; THERAPY END DATE : NOT ASKED, UNIT DOSE : 300 MG, FREQUENCY ; 1 , FREQUENCY TIM
     Route: 064
     Dates: start: 20211229
  3. DOLUTEGRAVIR [Suspect]
     Active Substance: DOLUTEGRAVIR
     Indication: HIV infection
     Dosage: 50 MILLIGRAM DAILY; THERAPY END DATE : NOT ASKED, UNIT DOSE : 50 MG, FREQUENCY ; 1 , FREQUENCY TIME
     Route: 064
     Dates: start: 20220125
  4. COBICISTAT [Suspect]
     Active Substance: COBICISTAT
     Indication: HIV infection
     Dosage: 1 DOSAGE FORMS DAILY; THERAPY START DATE : NOT ASKED,UNIT DOSE : 1 DOSAGE FORMS, FREQUENCY ; 1 , FRE
     Route: 064
     Dates: end: 20210718
  5. RALTEGRAVIR [Suspect]
     Active Substance: RALTEGRAVIR
     Indication: HIV infection
     Dosage: 800 MILLIGRAM DAILY;  UNIT DOSE : 800 MG, FREQUENCY ; 1 , FREQUENCY TIME : 1 DAYS,DURATION  : 162 DA
     Route: 064
     Dates: start: 20210719, end: 20211228
  6. RITONAVIR [Suspect]
     Active Substance: RITONAVIR
     Indication: HIV infection
     Dosage: 100 MILLIGRAM DAILY; UNIT DOSE : 100 MG, FREQUENCY ; 1 , FREQUENCY TIME : 1 DAYS,THERAPY END DATE :
     Route: 064
     Dates: start: 20211229
  7. ELVITEGRAVIR [Suspect]
     Active Substance: ELVITEGRAVIR
     Indication: HIV infection
     Dosage: 1 DOSAGE FORMS DAILY;
     Route: 064
     Dates: end: 20210718

REACTIONS (3)
  - Renal dysplasia [Not Recovered/Not Resolved]
  - Single functional kidney [Not Recovered/Not Resolved]
  - Foetal exposure during pregnancy [Recovered/Resolved]
